FAERS Safety Report 8057311-0 (Version None)
Quarter: 2012Q1

REPORT INFORMATION
  Report Type: 
  Country: None (occurrence: None)
  Receive Date: 20120119
  Receipt Date: 20120118
  Transmission Date: 20120608
  Serious: Yes (Death, Other)
  Sender: FDA-Public Use
  Company Number: PHEH2009US02491

PATIENT
  Sex: Female

DRUGS (14)
  1. ROCEPHIN [Concomitant]
  2. EFFEXOR [Concomitant]
  3. ESTRADERM [Concomitant]
  4. CLINDAMYCIN [Concomitant]
  5. AREDIA [Suspect]
     Indication: MULTIPLE MYELOMA
     Dosage: 90 MG, QMO
  6. ACIPHEX [Concomitant]
  7. LEVOXYL [Concomitant]
  8. DEXAMETHASONE TAB [Concomitant]
  9. ESTRACE [Concomitant]
  10. SYNTHROID [Concomitant]
  11. LORTAB [Concomitant]
  12. PREVACID [Concomitant]
  13. VALTREX [Concomitant]
  14. ADVAIR DISKUS 100/50 [Concomitant]

REACTIONS (62)
  - PAIN [None]
  - ATELECTASIS [None]
  - INTERVERTEBRAL DISC DEGENERATION [None]
  - SYNOVIAL CYST [None]
  - MUSCLE SPASMS [None]
  - SWELLING FACE [None]
  - HYPOTHYROIDISM [None]
  - MOOD ALTERED [None]
  - DECREASED INTEREST [None]
  - POST PROCEDURAL HAEMATOMA [None]
  - DEPRESSION [None]
  - INFLAMMATION [None]
  - FATIGUE [None]
  - CHEST DISCOMFORT [None]
  - INSOMNIA [None]
  - OSTEOPOROSIS [None]
  - OSTEONECROSIS OF JAW [None]
  - GENERAL PHYSICAL HEALTH DETERIORATION [None]
  - ASTHMA [None]
  - PARAESTHESIA [None]
  - HERPES ZOSTER [None]
  - MYALGIA [None]
  - HEADACHE [None]
  - SPINAL OSTEOARTHRITIS [None]
  - CONTUSION [None]
  - BONE PAIN [None]
  - BRONCHITIS CHRONIC [None]
  - ASCITES [None]
  - OSTEOMYELITIS ACUTE [None]
  - INFLUENZA LIKE ILLNESS [None]
  - TACHYCARDIA [None]
  - INTERVERTEBRAL DISC PROTRUSION [None]
  - SCOLIOSIS [None]
  - HYPERTENSION [None]
  - CENTRAL NERVOUS SYSTEM MASS [None]
  - OROPHARYNGEAL PAIN [None]
  - PNEUMONIA [None]
  - HYPERCALCAEMIA [None]
  - LIPOHYPERTROPHY [None]
  - NECK PAIN [None]
  - NEOPLASM PROGRESSION [None]
  - NEOPLASM MALIGNANT [None]
  - BACK PAIN [None]
  - DEATH [None]
  - KYPHOSIS [None]
  - RIB FRACTURE [None]
  - PAIN IN JAW [None]
  - METASTASES TO BONE [None]
  - ANXIETY [None]
  - SOFT TISSUE MASS [None]
  - ABSCESS [None]
  - HOT FLUSH [None]
  - SINUSITIS [None]
  - DECREASED APPETITE [None]
  - WEIGHT DECREASED [None]
  - ILEUS [None]
  - OSTEOPENIA [None]
  - OSTEOLYSIS [None]
  - CERVICAL DYSPLASIA [None]
  - DYSPEPSIA [None]
  - COMPRESSION FRACTURE [None]
  - HAEMORRHAGIC ANAEMIA [None]
